FAERS Safety Report 11078095 (Version 2)
Quarter: 2016Q2

REPORT INFORMATION
  Report Type: Spontaneous
  Country: JP (occurrence: JP)
  Receive Date: 20150430
  Receipt Date: 20160509
  Transmission Date: 20160815
  Serious: Yes (Other)
  Sender: FDA-Public Use
  Company Number: JP-ACCORD-030399

PATIENT
  Age: 67 Year
  Sex: Male

DRUGS (3)
  1. TRASTUZUMAB [Suspect]
     Active Substance: TRASTUZUMAB
     Indication: GASTRIC CANCER
     Dosage: ON DAY 1
  2. FLUOROURACIL. [Suspect]
     Active Substance: FLUOROURACIL
     Indication: GASTRIC CANCER
     Dosage: CONTINUOUS INFUSION OF 5-FLUOROURACIL (5-FU) FOR 5 DAYS.
  3. CISPLATIN. [Suspect]
     Active Substance: CISPLATIN
     Indication: GASTRIC CANCER

REACTIONS (5)
  - Cerebral artery embolism [Not Recovered/Not Resolved]
  - Cerebrovascular accident [Unknown]
  - Anaemia [Unknown]
  - Platelet count increased [Unknown]
  - Performance status decreased [Unknown]
